FAERS Safety Report 12808363 (Version 1)
Quarter: 2016Q4

REPORT INFORMATION
  Report Type: Spontaneous
  Country: FR (occurrence: FR)
  Receive Date: 20161004
  Receipt Date: 20161004
  Transmission Date: 20170207
  Serious: Yes (Death, Hospitalization)
  Sender: FDA-Public Use
  Company Number: FR-ASTRAZENECA-2016SF03764

PATIENT
  Age: 22724 Day
  Sex: Male

DRUGS (15)
  1. ZYTIGA [Suspect]
     Active Substance: ABIRATERONE ACETATE
     Indication: PROSTATE CANCER
     Route: 048
     Dates: start: 20160308
  2. PRETERAX [Concomitant]
     Active Substance: INDAPAMIDE\PERINDOPRIL
  3. PRIMPERAN [Suspect]
     Active Substance: METOCLOPRAMIDE HYDROCHLORIDE
     Route: 048
     Dates: end: 201609
  4. THERALENE [Suspect]
     Active Substance: TRIMEPRAZINE
     Dosage: 20.0GTT UNKNOWN
     Route: 048
     Dates: end: 201609
  5. FLUMICIL [Concomitant]
  6. PARACETAMOL [Suspect]
     Active Substance: ACETAMINOPHEN
     Dosage: 1.0G AS REQUIRED
     Route: 048
     Dates: end: 201609
  7. INEXIUM [Suspect]
     Active Substance: ESOMEPRAZOLE
     Route: 048
     Dates: end: 201609
  8. DITROPAN [Suspect]
     Active Substance: OXYBUTYNIN CHLORIDE
     Route: 048
     Dates: end: 201609
  9. ACUPAN [Suspect]
     Active Substance: NEFOPAM HYDROCHLORIDE
     Route: 065
     Dates: end: 201609
  10. DIFFU K [Concomitant]
     Active Substance: POTASSIUM CHLORIDE
  11. PREDNISOLONE. [Concomitant]
     Active Substance: PREDNISOLONE
     Dates: start: 20160801
  12. TAXOTERE [Concomitant]
     Active Substance: DOCETAXEL
     Dates: start: 201603
  13. ZYTIGA [Suspect]
     Active Substance: ABIRATERONE ACETATE
     Indication: PROSTATE CANCER
     Route: 048
     Dates: start: 20160801, end: 201609
  14. ROCEPHINE [Suspect]
     Active Substance: CEFTRIAXONE SODIUM
     Route: 065
     Dates: start: 20160830, end: 201609
  15. FLAGYL [Concomitant]
     Active Substance: METRONIDAZOLE\METRONIDAZOLE HYDROCHLORIDE

REACTIONS (4)
  - Seizure [Unknown]
  - Death [Fatal]
  - Hepatitis [Recovering/Resolving]
  - Renal failure [Recovering/Resolving]

NARRATIVE: CASE EVENT DATE: 20160830
